FAERS Safety Report 6618066-7 (Version None)
Quarter: 2010Q1

REPORT INFORMATION
  Report Type: 
  Country: None (occurrence: None)
  Receive Date: 20100302
  Receipt Date: 20100226
  Transmission Date: 20100710
  Serious: Yes (Hospitalization)
  Sender: FDA-Public Use
  Company Number: 2010SP012535

PATIENT
  Age: 78 Year
  Sex: Female

DRUGS (11)
  1. INTEGRILIN [Suspect]
     Indication: DRUG USE FOR UNKNOWN INDICATION
     Dosage: IV
     Route: 042
  2. ASPIRIN [Suspect]
     Indication: DRUG USE FOR UNKNOWN INDICATION
     Dosage: 80.0 MG; PO
     Route: 048
  3. LOVENOX [Suspect]
     Indication: DRUG USE FOR UNKNOWN INDICATION
     Dosage: 100,0 MG; SC
     Route: 058
  4. PLAVIX [Suspect]
     Indication: DRUG USE FOR UNKNOWN INDICATION
     Dosage: PO
     Route: 048
  5. ALTACE [Concomitant]
  6. FLOVENT [Concomitant]
  7. LIPITOR [Concomitant]
  8. NITROGLYCERIN [Concomitant]
  9. PARIET [Concomitant]
  10. TIAZAC [Concomitant]
  11. VENTOLIN [Concomitant]

REACTIONS (1)
  - CATHETER SITE HAEMORRHAGE [None]
